FAERS Safety Report 9716655 (Version 1)
Quarter: 2013Q4

REPORT INFORMATION
  Report Type: Spontaneous
  Country: US (occurrence: US)
  Receive Date: 20131127
  Receipt Date: 20131127
  Transmission Date: 20140711
  Serious: No
  Sender: FDA-Public Use
  Company Number: US-PFIZER INC-2013338104

PATIENT
  Sex: Female

DRUGS (2)
  1. ZOLOFT [Suspect]
     Dosage: UNK
  2. ZOLOFT [Suspect]
     Dosage: 200 MG, DAILY

REACTIONS (4)
  - Hyperhidrosis [Unknown]
  - Nervousness [Unknown]
  - Abnormal behaviour [Unknown]
  - Drug effect incomplete [Unknown]
